FAERS Safety Report 10447448 (Version 2)
Quarter: 2014Q4

REPORT INFORMATION
  Report Type: Spontaneous
  Country: TW (occurrence: TW)
  Receive Date: 20140911
  Receipt Date: 20141204
  Transmission Date: 20150528
  Serious: Yes (Hospitalization)
  Sender: FDA-Public Use
  Company Number: TW-JNJFOC-20140906488

PATIENT
  Age: 55 Year
  Sex: Male
  Weight: 56.5 kg

DRUGS (35)
  1. CLOBETASOL PROPIONATE. [Concomitant]
     Active Substance: CLOBETASOL PROPIONATE
     Dates: start: 20140819
  2. CLOBETASOL PROPIONATE. [Concomitant]
     Active Substance: CLOBETASOL PROPIONATE
     Dates: start: 20140916
  3. HYDROCORTISONE ACETATE. [Concomitant]
     Active Substance: HYDROCORTISONE ACETATE
     Route: 065
     Dates: start: 20140624
  4. DAIVOBET [Concomitant]
     Active Substance: BETAMETHASONE DIPROPIONATE\CALCIPOTRIENE
     Route: 065
     Dates: start: 20141021
  5. CLOBETASOL PROPIONATE. [Concomitant]
     Active Substance: CLOBETASOL PROPIONATE
     Dates: start: 20140722
  6. UREA. [Concomitant]
     Active Substance: UREA
     Route: 065
     Dates: start: 20140722
  7. SIMPONI [Suspect]
     Active Substance: GOLIMUMAB
     Indication: PSORIASIS
     Route: 058
     Dates: start: 20140916
  8. HYDROCORTISONE ACETATE. [Concomitant]
     Active Substance: HYDROCORTISONE ACETATE
     Route: 065
     Dates: start: 20140610
  9. UREA. [Concomitant]
     Active Substance: UREA
     Route: 065
     Dates: start: 20140916
  10. UREA. [Concomitant]
     Active Substance: UREA
     Route: 065
     Dates: start: 20141118
  11. SIMPONI [Suspect]
     Active Substance: GOLIMUMAB
     Indication: PSORIASIS
     Route: 058
     Dates: start: 20140722
  12. ACITRETIN. [Concomitant]
     Active Substance: ACITRETIN
     Route: 048
     Dates: start: 20140610
  13. DAIVOBET [Concomitant]
     Active Substance: BETAMETHASONE DIPROPIONATE\CALCIPOTRIENE
     Route: 065
     Dates: start: 20140819
  14. CLOBETASOL PROPIONATE. [Concomitant]
     Active Substance: CLOBETASOL PROPIONATE
     Dates: start: 20141118
  15. CLOBETASOL PROPIONATE. [Concomitant]
     Active Substance: CLOBETASOL PROPIONATE
     Dates: start: 20140624
  16. UREA. [Concomitant]
     Active Substance: UREA
     Route: 065
     Dates: start: 20140527
  17. UREA. [Concomitant]
     Active Substance: UREA
     Route: 065
     Dates: start: 20140819
  18. UREA. [Concomitant]
     Active Substance: UREA
     Route: 065
     Dates: start: 20141021
  19. SIMPONI [Suspect]
     Active Substance: GOLIMUMAB
     Indication: PSORIASIS
     Route: 058
     Dates: start: 20140819
  20. DAIVOBET [Concomitant]
     Active Substance: BETAMETHASONE DIPROPIONATE\CALCIPOTRIENE
     Route: 065
     Dates: start: 20140610
  21. DAIVOBET [Concomitant]
     Active Substance: BETAMETHASONE DIPROPIONATE\CALCIPOTRIENE
     Route: 065
     Dates: start: 20141118
  22. CLOBETASOL PROPIONATE. [Concomitant]
     Active Substance: CLOBETASOL PROPIONATE
     Dates: start: 20140610
  23. CLOBETASOL PROPIONATE. [Concomitant]
     Active Substance: CLOBETASOL PROPIONATE
     Dates: start: 20141021
  24. HYDROCORTISONE ACETATE. [Concomitant]
     Active Substance: HYDROCORTISONE ACETATE
     Route: 065
     Dates: start: 20140527
  25. SIMPONI [Suspect]
     Active Substance: GOLIMUMAB
     Indication: PSORIASIS
     Route: 058
     Dates: start: 20141121
  26. DAIVOBET [Concomitant]
     Active Substance: BETAMETHASONE DIPROPIONATE\CALCIPOTRIENE
     Route: 065
     Dates: start: 20140527
  27. DAIVOBET [Concomitant]
     Active Substance: BETAMETHASONE DIPROPIONATE\CALCIPOTRIENE
     Route: 065
     Dates: start: 20140722
  28. HYDROCORTISONE ACETATE. [Concomitant]
     Active Substance: HYDROCORTISONE ACETATE
     Route: 065
     Dates: start: 20140722
  29. UREA. [Concomitant]
     Active Substance: UREA
     Route: 065
     Dates: start: 20140624
  30. SIMPONI [Suspect]
     Active Substance: GOLIMUMAB
     Indication: PSORIASIS
     Route: 058
  31. DAIVOBET [Concomitant]
     Active Substance: BETAMETHASONE DIPROPIONATE\CALCIPOTRIENE
     Route: 065
     Dates: start: 20140916
  32. CLOBETASOL PROPIONATE. [Concomitant]
     Active Substance: CLOBETASOL PROPIONATE
     Dates: start: 20140527
  33. HYDROCORTISONE ACETATE. [Concomitant]
     Active Substance: HYDROCORTISONE ACETATE
     Route: 065
     Dates: start: 20140819
  34. HYDROCORTISONE ACETATE. [Concomitant]
     Active Substance: HYDROCORTISONE ACETATE
     Route: 065
     Dates: start: 20140916
  35. UREA. [Concomitant]
     Active Substance: UREA
     Route: 065
     Dates: start: 20140610

REACTIONS (2)
  - Fasciitis [Recovered/Resolved]
  - Cellulitis [Recovered/Resolved]

NARRATIVE: CASE EVENT DATE: 20140831
